FAERS Safety Report 16037757 (Version 1)
Quarter: 2019Q1

REPORT INFORMATION
  Report Type: Spontaneous
  Country: FR (occurrence: FR)
  Receive Date: 20190305
  Receipt Date: 20190305
  Transmission Date: 20190418
  Serious: Yes (Other)
  Sender: FDA-Public Use
  Company Number: FR-MYLANLABS-2019M1019455

PATIENT
  Age: 49 Year
  Sex: Male

DRUGS (1)
  1. TOPIRAMATE. [Suspect]
     Active Substance: TOPIRAMATE
     Indication: PRODUCT USED FOR UNKNOWN INDICATION
     Dosage: 200 MILLIGRAM, QD
     Route: 048
     Dates: start: 20180605

REACTIONS (4)
  - Hallucination [Unknown]
  - Drug dependence [Unknown]
  - Diarrhoea [Unknown]
  - Tinnitus [Unknown]

NARRATIVE: CASE EVENT DATE: 201807
